FAERS Safety Report 9173872 (Version 1)
Quarter: 2013Q1

REPORT INFORMATION
  Report Type: Spontaneous
  Country: FR (occurrence: FR)
  Receive Date: 20130320
  Receipt Date: 20130320
  Transmission Date: 20140127
  Serious: Yes (Hospitalization)
  Sender: FDA-Public Use
  Company Number: FR-BRISTOL-MYERS SQUIBB COMPANY-17473190

PATIENT
  Age: 89 Year
  Sex: Male

DRUGS (8)
  1. COUMADIN TABS 5 MG [Suspect]
     Indication: ATRIAL FIBRILLATION
     Dosage: TABS?1 D.F:2TABS
     Route: 048
     Dates: end: 20120418
  2. KARDEGIC [Suspect]
     Indication: ATRIAL FIBRILLATION
     Dosage: 75 MG, POWDER FOR ORAL SOLUTION IN SACHET ?1 D.F:ONE SACHET
     Route: 048
     Dates: end: 20120418
  3. DETENSIEL [Suspect]
     Dosage: 10 MG FILM-COATED SCORED TABLET?1 D.F:ONE TABLET
     Route: 048
  4. MODOPAR [Concomitant]
     Dosage: 125 DISPERSIBLE(100 MG/25 MG)SCORED TAB FOR ORAL SUSPENSION?1DF:1 TAB TWICE DAILY AT NOON+BEDTIME
     Route: 048
  5. DIGOXINE NATIVELLE [Concomitant]
     Dosage: 5 MICROGRAMS/0.1 ML, ORAL SOLUTION DROPS?MOR
     Route: 048
     Dates: end: 20120418
  6. LASILIX [Concomitant]
     Dosage: 40 MG, SCORED TABLET ?1 D.F:1 TAB
     Route: 048
     Dates: start: 20120417, end: 20120418
  7. ATROPINE [Concomitant]
     Dosage: ATROPINE 1%, IN THE EVENING
     Route: 060
  8. NATI-K [Concomitant]
     Route: 048
     Dates: end: 20120418

REACTIONS (2)
  - Melaena [Recovered/Resolved]
  - Bronchial obstruction [Unknown]
